FAERS Safety Report 8299221-X (Version None)
Quarter: 2012Q2

REPORT INFORMATION
  Report Type: 
  Country: None (occurrence: None)
  Receive Date: 20120419
  Receipt Date: 20120412
  Transmission Date: 20120825
  Serious: Yes (Hospitalization)
  Sender: FDA-Public Use
  Company Number: DE-ASTRAZENECA-2012SE24498

PATIENT

DRUGS (1)
  1. ATACAND [Suspect]
     Route: 048

REACTIONS (1)
  - HEPATITIS TOXIC [None]
